FAERS Safety Report 8577129-X (Version None)
Quarter: 2012Q2

REPORT INFORMATION
  Report Type: 
  Country: None (occurrence: None)
  Receive Date: 20120423
  Receipt Date: 20090708
  Transmission Date: 20120825
  Serious: Yes (Other)
  Sender: FDA-Public Use
  Company Number: PHEH2009US07346

PATIENT
  Sex: Female

DRUGS (1)
  1. EXJADE [Suspect]
     Dosage: 500 MG, DAILY, ORAL 250 MG, ORAL
     Route: 048
     Dates: end: 20090603

REACTIONS (3)
  - EAR PAIN [None]
  - DEAFNESS [None]
  - HEARING IMPAIRED [None]
